FAERS Safety Report 9803102 (Version 2)
Quarter: 2014Q1

REPORT INFORMATION
  Report Type: Spontaneous
  Country: US (occurrence: None)
  Receive Date: 20140102
  Receipt Date: 20140221
  Transmission Date: 20141002
  Serious: Yes (Other)
  Sender: FDA-Public Use
  Company Number: SYM-2013-14468

PATIENT
  Age: 70 Year
  Sex: Female

DRUGS (1)
  1. XENAZINE (TETRABENAZINE) (25 MILLIGRAM, TABLET) (TETRABENAZINE) [Suspect]
     Indication: HUNTINGTON^S DISEASE
     Route: 048
     Dates: start: 20121015

REACTIONS (2)
  - Convulsion [None]
  - Nasopharyngitis [None]
